FAERS Safety Report 6018916-1 (Version None)
Quarter: 2008Q4

REPORT INFORMATION
  Report Type: 
  Country: None (occurrence: None)
  Receive Date: 20081224
  Receipt Date: 20081212
  Transmission Date: 20090506
  Serious: Yes (Other)
  Sender: FDA-Public Use
  Company Number: ES-PFIZER INC-2008152967

PATIENT

DRUGS (2)
  1. METHOTREXATE SODIUM [Interacting]
     Indication: ACUTE LYMPHOCYTIC LEUKAEMIA
     Dosage: 3 G/M2
     Route: 042
  2. GEMFIBROZIL [Suspect]
     Indication: HYPERLIPIDAEMIA

REACTIONS (3)
  - DRUG INTERACTION [None]
  - MUCOSAL INFLAMMATION [None]
  - RENAL FAILURE ACUTE [None]
